FAERS Safety Report 9229093 (Version 1)
Quarter: 2013Q2

REPORT INFORMATION
  Report Type: Spontaneous
  Country: DE (occurrence: DE)
  Receive Date: 20130412
  Receipt Date: 20130412
  Transmission Date: 20140414
  Serious: Yes (Hospitalization)
  Sender: FDA-Public Use
  Company Number: DE-ELI_LILLY_AND_COMPANY-DE201304001227

PATIENT
  Sex: Female

DRUGS (6)
  1. FORSTEO [Suspect]
     Indication: OSTEOPOROSIS
     Dosage: UNK, ONCE DAILY
     Route: 058
     Dates: start: 20120813, end: 20130310
  2. FORSTEO [Suspect]
     Dosage: UNK, ONCE DAILY
     Route: 058
     Dates: start: 20130322
  3. CORTISONE [Concomitant]
  4. MTX [Concomitant]
  5. ATACAND [Concomitant]
  6. METOPROLOL [Concomitant]

REACTIONS (5)
  - Rash [Not Recovered/Not Resolved]
  - Haemorrhagic cyst [Not Recovered/Not Resolved]
  - Weight decreased [Not Recovered/Not Resolved]
  - Full blood count abnormal [Not Recovered/Not Resolved]
  - Eating disorder [Unknown]
